FAERS Safety Report 11195139 (Version 1)
Quarter: 2015Q2

REPORT INFORMATION
  Report Type: Spontaneous
  Country: US (occurrence: None)
  Receive Date: 20150615
  Receipt Date: 20150615
  Transmission Date: 20150821
  Serious: Yes (Disabling)
  Sender: FDA-Public Use
  Company Number: None

PATIENT
  Age: 59 Year
  Sex: Female
  Weight: 62.14 kg

DRUGS (2)
  1. VIEKIRA PAK [Suspect]
     Active Substance: DASABUVIR\OMBITASVIR\PARITAPREVIR\RITONAVIR
     Indication: HEPATITIS C
     Dosage: 3 PILLS AM 1 PILL PM
     Route: 048
     Dates: start: 20150513, end: 20150611
  2. MODERIBA [Suspect]
     Active Substance: RIBAVIRIN
     Indication: HEPATITIS C
     Dosage: 3 AM 2 PM
     Route: 048
     Dates: start: 20150513, end: 20150611

REACTIONS (2)
  - Haemorrhoidal haemorrhage [None]
  - Rectal haemorrhage [None]

NARRATIVE: CASE EVENT DATE: 20150528
